FAERS Safety Report 20173131 (Version 1)
Quarter: 2021Q4

REPORT INFORMATION
  Report Type: Spontaneous
  Country: BR (occurrence: BR)
  Receive Date: 20211211
  Receipt Date: 20211211
  Transmission Date: 20220303
  Serious: Yes (Other)
  Sender: FDA-Public Use
  Company Number: BR-TAKEDA-2021TUS046130

PATIENT
  Age: 39 Year
  Sex: Female
  Weight: 53 kg

DRUGS (3)
  1. LISDEXAMFETAMINE DIMESYLATE [Suspect]
     Active Substance: LISDEXAMFETAMINE DIMESYLATE
     Indication: Attention deficit hyperactivity disorder
     Dosage: 70 MILLIGRAM, QD
     Route: 050
     Dates: start: 2019
  2. LISDEXAMFETAMINE DIMESYLATE [Suspect]
     Active Substance: LISDEXAMFETAMINE DIMESYLATE
     Dosage: 70 MILLIGRAM, BID
     Route: 065
  3. CITALOPRAM [Concomitant]
     Active Substance: CITALOPRAM HYDROBROMIDE
     Dosage: 10 MILLIGRAM, QD
     Route: 065

REACTIONS (17)
  - Drug dependence [Unknown]
  - Mental impairment [Unknown]
  - Anxiety [Unknown]
  - Fatigue [Unknown]
  - Emotional distress [Unknown]
  - Sleep disorder [Unknown]
  - Confusional state [Unknown]
  - Drug ineffective [Unknown]
  - Intentional overdose [Unknown]
  - Disturbance in attention [Unknown]
  - Speech disorder [Unknown]
  - Somnolence [Unknown]
  - Agitation [Unknown]
  - Product packaging quantity issue [Unknown]
  - Therapy interrupted [Unknown]
  - Hypokinesia [Unknown]
  - Fear [Unknown]

NARRATIVE: CASE EVENT DATE: 20210714
